FAERS Safety Report 11805998 (Version 4)
Quarter: 2016Q2

REPORT INFORMATION
  Report Type: Report from Study
  Country: CA (occurrence: CA)
  Receive Date: 20151207
  Receipt Date: 20160420
  Transmission Date: 20160815
  Serious: Yes (Other)
  Sender: FDA-Public Use
  Company Number: CA-UCBSA-2015038929

PATIENT
  Sex: Male

DRUGS (3)
  1. FOSAMAX [Suspect]
     Active Substance: ALENDRONATE SODIUM
     Indication: PRODUCT USED FOR UNKNOWN INDICATION
     Dosage: UNK
     Dates: end: 201508
  2. CERTOLIZUMAB PEGOL ASP [Suspect]
     Active Substance: CERTOLIZUMAB PEGOL
     Dosage: 200 MG, EV 2 WEEKS(QOW)
     Route: 058
     Dates: start: 20141008
  3. CERTOLIZUMAB PEGOL ASP [Suspect]
     Active Substance: CERTOLIZUMAB PEGOL
     Indication: ANKYLOSING SPONDYLITIS
     Dosage: 400 MG, EV 2 WEEKS(QOW); WEEK 0, 2 AND 4)
     Route: 058
     Dates: start: 20140827, end: 20140924

REACTIONS (15)
  - Diarrhoea [Not Recovered/Not Resolved]
  - Mood altered [Recovered/Resolved]
  - Feeling abnormal [Unknown]
  - Suicidal ideation [Recovered/Resolved]
  - Vomiting [Unknown]
  - Arthropathy [Unknown]
  - Abdominal pain [Unknown]
  - Crohn^s disease [Unknown]
  - Anger [Unknown]
  - Treatment noncompliance [Unknown]
  - Weight decreased [Unknown]
  - Nausea [Unknown]
  - Food intolerance [Unknown]
  - Depression [Unknown]
  - Fungal infection [Unknown]

NARRATIVE: CASE EVENT DATE: 2015
